FAERS Safety Report 6934967-4 (Version None)
Quarter: 2010Q3

REPORT INFORMATION
  Report Type: 
  Country: None (occurrence: None)
  Receive Date: 20100821
  Receipt Date: 20100816
  Transmission Date: 20110219
  Serious: Yes (Death, Hospitalization)
  Sender: FDA-Public Use
  Company Number: PHHY2010NL46277

PATIENT
  Sex: Male

DRUGS (16)
  1. ZOMETA [Suspect]
     Dosage: 4 MG, UNK
     Dates: start: 20090423
  2. ZOMETA [Suspect]
     Dosage: 4 MG, UNK
     Dates: start: 20090518
  3. ZOMETA [Suspect]
     Dosage: 4 MG, UNK
     Dates: start: 20090611
  4. ZOMETA [Suspect]
     Dosage: 4 MG, UNK
     Dates: start: 20090709
  5. ZOMETA [Suspect]
     Dosage: 4 MG, UNK
     Dates: start: 20090806
  6. ZOMETA [Suspect]
     Dosage: 4 MG, UNK
     Dates: start: 20090907
  7. ZOMETA [Suspect]
     Dosage: 4 MG, UNK
     Dates: start: 20091005
  8. ZOMETA [Suspect]
     Dosage: 4 MG, UNK
     Dates: start: 20091103
  9. ZOMETA [Suspect]
     Dosage: 4 MG, UNK
     Dates: start: 20091201
  10. ZOMETA [Suspect]
     Dosage: 4 MG, UNK
     Dates: start: 20091229
  11. ZOMETA [Suspect]
     Dosage: 4 MG, UNK
     Dates: start: 20100126
  12. ZOMETA [Suspect]
     Dosage: 4 MG, UNK
     Dates: start: 20100223
  13. ZOMETA [Suspect]
     Dosage: 4 MG, UNK
     Dates: start: 20100323
  14. ZOMETA [Suspect]
     Dosage: 4 MG, UNK
     Dates: start: 20100420
  15. ZOMETA [Suspect]
     Dosage: 4 MG, UNK
     Dates: start: 20100518
  16. ZOMETA [Suspect]
     Dosage: 4 MG, UNK
     Dates: start: 20100615

REACTIONS (5)
  - ANAEMIA [None]
  - DEATH [None]
  - DEHYDRATION [None]
  - GENERAL PHYSICAL HEALTH DETERIORATION [None]
  - PAIN [None]
